FAERS Safety Report 8210318-2 (Version None)
Quarter: 2012Q1

REPORT INFORMATION
  Report Type: 
  Country: None (occurrence: None)
  Receive Date: 20120314
  Receipt Date: 20110317
  Transmission Date: 20120608
  Serious: No
  Sender: FDA-Public Use
  Company Number: US-ASTRAZENECA-2011SE15244

PATIENT
  Age: 73 Year
  Sex: Male

DRUGS (9)
  1. METOPROLOL SUCCINATE [Suspect]
     Route: 048
     Dates: start: 20110101
  2. LIPITOR [Concomitant]
     Indication: HYPERCHOLESTEROLAEMIA
  3. FERROUS SULFATE TAB [Concomitant]
  4. ATENOLOL [Concomitant]
  5. LEVODOPA [Concomitant]
     Indication: PARKINSON'S DISEASE
  6. SELEGILINE [Concomitant]
     Indication: PARKINSON'S DISEASE
  7. CARBIDOPA [Concomitant]
     Indication: PARKINSON'S DISEASE
  8. FOLIC ACID [Concomitant]
  9. LASIX [Concomitant]

REACTIONS (1)
  - EOSINOPHILIA [None]
